FAERS Safety Report 5682761-7 (Version None)
Quarter: 2008Q1

REPORT INFORMATION
  Report Type: 
  Country: None (occurrence: None)
  Receive Date: 20080327
  Receipt Date: 20080318
  Transmission Date: 20080703
  Serious: Yes (Death)
  Sender: FDA-Public Use
  Company Number: FI-ROCHE-554164

PATIENT
  Age: 66 Year
  Sex: Female

DRUGS (3)
  1. XELODA [Suspect]
     Indication: GASTRIC CANCER
     Dosage: DOSAGE REGIMEN REPORTED AS 1250 MG/M2 X 2 / 6,5 DAYS
     Route: 048
     Dates: start: 20080305, end: 20080308
  2. DOCETAXEL [Concomitant]
     Indication: GASTRIC CANCER
     Route: 042
     Dates: start: 20080305, end: 20080308
  3. BISOPROLOL FUMARATE [Concomitant]
     Indication: HYPERTENSION
     Dosage: DOSAGE REGIMEN REPORTED AS 5 MG X 1
     Route: 048

REACTIONS (3)
  - NAUSEA [None]
  - SUDDEN DEATH [None]
  - VENTRICULAR FIBRILLATION [None]
